FAERS Safety Report 4825721-8 (Version None)
Quarter: 2005Q4

REPORT INFORMATION
  Report Type: 
  Country: None (occurrence: None)
  Receive Date: 20051109
  Receipt Date: 20051027
  Transmission Date: 20060501
  Serious: Yes (Other)
  Sender: FDA-Public Use
  Company Number: 2005147840

PATIENT
  Age: 49 Year
  Sex: Male
  Weight: 89.8122 kg

DRUGS (5)
  1. NEURONTIN [Suspect]
     Indication: NEURALGIA
     Dosage: 900 MG (300 MG, 3 IN 1 D), ORAL
     Route: 048
     Dates: start: 20020101
  2. HYDROCODONE BITARTRATE [Suspect]
     Indication: NEURALGIA
     Dosage: ORAL
     Route: 048
  3. KADIAN [Suspect]
     Indication: NEURALGIA
     Dosage: 30 MG, ORAL
     Route: 048
     Dates: start: 20050728
  4. MULTIVITAMIN [Concomitant]
  5. SYNTHROID [Concomitant]

REACTIONS (10)
  - ARTHRALGIA [None]
  - ARTHRITIS [None]
  - CONSTIPATION [None]
  - INADEQUATE ANALGESIA [None]
  - PAIN IN EXTREMITY [None]
  - SHOULDER PAIN [None]
  - SPINAL COLUMN STENOSIS [None]
  - SPINAL FUSION ACQUIRED [None]
  - SURGICAL PROCEDURE REPEATED [None]
  - TENDONITIS [None]
